FAERS Safety Report 4833314-1 (Version None)
Quarter: 2005Q4

REPORT INFORMATION
  Report Type: 
  Country: None (occurrence: None)
  Receive Date: 20051117
  Receipt Date: 20051104
  Transmission Date: 20060501
  Serious: Yes (Hospitalization)
  Sender: FDA-Public Use
  Company Number: 2005152532

PATIENT
  Age: 53 Year
  Sex: Female

DRUGS (10)
  1. MEDROL [Suspect]
     Indication: ILL-DEFINED DISORDER
     Dosage: (CYCLIC), ORAL
     Route: 048
     Dates: start: 20050614
  2. TAXOTERE [Suspect]
     Indication: BREAST CANCER
     Dosage: 100 MG (CYCLIC INTERVAL: EVERY DAY), INTRAVENOUS
     Route: 042
     Dates: start: 20050615
  3. PLITICAN                (ALIZAPRIDE HYDROCHLORIDE) [Suspect]
     Indication: ILL-DEFINED DISORDER
     Dosage: 50 MG (CYCLIC INTERVAL: EVERY DAY), INTRAVENOUS
     Route: 042
     Dates: start: 20050615
  4. ZOFRAN [Suspect]
     Indication: ILL-DEFINED DISORDER
     Dosage: 8 MG (2 MG, CYCLIC INTERVAL: EVERY DAY), INTRAVENOUS
     Route: 042
     Dates: start: 20050615
  5. DOLIPRANE                    (PARACETAMOL) [Concomitant]
  6. MYOLASTAN            (TETRAZEPAM) [Concomitant]
  7. OMEPRAZOLE [Concomitant]
  8. NEURONTIN [Concomitant]
  9. LORAZEPAM [Concomitant]
  10. MORPHINE [Concomitant]

REACTIONS (1)
  - DIARRHOEA [None]
